FAERS Safety Report 8440371-2 (Version None)
Quarter: 2012Q2

REPORT INFORMATION
  Report Type: 
  Country: None (occurrence: None)
  Receive Date: 20120615
  Receipt Date: 20120601
  Transmission Date: 20120825
  Serious: Yes (Death, Life-Threatening, Hospitalization)
  Sender: FDA-Public Use
  Company Number: NL-ROCHE-GNE321214

PATIENT
  Sex: Male
  Weight: 74.079 kg

DRUGS (15)
  1. MABTHERA [Suspect]
     Indication: B-CELL LYMPHOMA
     Dosage: 710 MG, UNK
     Route: 042
     Dates: start: 20101111
  2. DOXORUBICIN HCL [Suspect]
     Indication: B-CELL LYMPHOMA
     Dosage: UNK
     Route: 042
     Dates: start: 20101111
  3. VALACYCLOVIR HYDROCHLORIDE [Concomitant]
     Indication: VIRAL INFECTION
  4. FENAZEPAM [Concomitant]
     Indication: INSOMNIA
  5. COTRIM [Concomitant]
     Indication: FUNGAL INFECTION
     Dates: start: 20101111
  6. VINCRISTINE SULFATE [Suspect]
     Indication: B-CELL LYMPHOMA
     Dosage: 1 MG, UNK
     Dates: start: 20101111
  7. DIFLUCAN [Concomitant]
     Indication: FUNGAL INFECTION
     Route: 048
     Dates: start: 20101111
  8. DICLOFENAC SODIUM [Concomitant]
     Indication: PAIN
  9. ALLOPURINOL [Concomitant]
     Indication: GOUT
  10. VALACYCLOVIR HYDROCHLORIDE [Concomitant]
     Indication: HERPES VIRUS INFECTION
     Route: 048
     Dates: start: 20101111
  11. PREDNISONE TAB [Suspect]
     Indication: B-CELL LYMPHOMA
     Dosage: 500 MG, UNK
     Dates: start: 20101111
  12. COTRIM [Concomitant]
     Indication: PROPHYLAXIS
     Route: 048
     Dates: start: 20101111
  13. CYCLOPHOSPHAMIDE [Suspect]
     Indication: B-CELL LYMPHOMA
     Dosage: 1430 MG, UNK
     Route: 042
     Dates: start: 20101111
  14. NEULASTA [Suspect]
     Indication: B-CELL LYMPHOMA
     Dosage: 6 MG, UNK
  15. ONDANSETRON [Concomitant]
     Indication: NAUSEA
     Route: 048
     Dates: start: 20110120, end: 20110122

REACTIONS (3)
  - PULMONARY SEPSIS [None]
  - CARDIAC FAILURE [None]
  - DISEASE PROGRESSION [None]
